FAERS Safety Report 24226781 (Version 1)
Quarter: 2024Q3

REPORT INFORMATION
  Report Type: Spontaneous
  Country: US (occurrence: US)
  Receive Date: 20240820
  Receipt Date: 20240820
  Transmission Date: 20241016
  Serious: Yes (Other)
  Sender: REGENERON
  Company Number: US-REGENERON PHARMACEUTICALS, INC.-2024-110674

PATIENT
  Sex: Female

DRUGS (6)
  1. EYLEA HD [Suspect]
     Active Substance: AFLIBERCEPT
     Indication: Age-related macular degeneration
     Dosage: 8 MG Q4W; LEFT EYE; EVERY 4 WEEKS; FORMULATION: HD
     Dates: start: 20240318, end: 20240318
  2. EYLEA HD [Suspect]
     Active Substance: AFLIBERCEPT
     Dosage: 8 MG Q4W; LEFT EYE; EVERY 4 WEEKS; FORMULATION: HD
     Dates: start: 20240415, end: 20240415
  3. EYLEA HD [Suspect]
     Active Substance: AFLIBERCEPT
     Dosage: 8 MG Q4W; LEFT EYE; EVERY 4 WEEKS; FORMULATION: HD
     Dates: start: 20240520, end: 20240520
  4. COSOPT [Concomitant]
     Active Substance: DORZOLAMIDE HYDROCHLORIDE\TIMOLOL MALEATE
     Indication: Product used for unknown indication
  5. BRIMONIDINE [Concomitant]
     Active Substance: BRIMONIDINE TARTRATE
     Indication: Product used for unknown indication
  6. LUMIGAN [Concomitant]
     Active Substance: BIMATOPROST
     Indication: Product used for unknown indication

REACTIONS (3)
  - Ocular hypertension [Recovered/Resolved]
  - Vitreal cells [Recovered/Resolved]
  - Chorioretinitis [Recovering/Resolving]

NARRATIVE: CASE EVENT DATE: 20240318
